FAERS Safety Report 14375729 (Version 1)
Quarter: 2018Q1

REPORT INFORMATION
  Report Type: Spontaneous
  Country: GB (occurrence: GB)
  Receive Date: 20180111
  Receipt Date: 20180111
  Transmission Date: 20180509
  Serious: Yes (Hospitalization)
  Sender: FDA-Public Use
  Company Number: GB-009507513-1801GBR000557

PATIENT
  Age: 46 Year
  Sex: Female
  Weight: 47 kg

DRUGS (17)
  1. TACROLIMUS. [Suspect]
     Active Substance: TACROLIMUS
     Dates: start: 20171101
  2. CLONAZEPAM. [Concomitant]
     Active Substance: CLONAZEPAM
  3. ASPIRIN. [Concomitant]
     Active Substance: ASPIRIN
  4. MEROPENEM. [Suspect]
     Active Substance: MEROPENEM
     Dosage: 2000 MG, QD
     Route: 042
     Dates: start: 20171113, end: 20171118
  5. LISINOPRIL. [Concomitant]
     Active Substance: LISINOPRIL
  6. AMLODIPINE [Concomitant]
     Active Substance: AMLODIPINE BESYLATE
  7. DOXYCYCLINE. [Suspect]
     Active Substance: DOXYCYCLINE
     Dosage: 200 MG, QD
     Route: 048
     Dates: start: 20171111, end: 20171118
  8. OMEPRAZOLE. [Concomitant]
     Active Substance: OMEPRAZOLE
  9. SERTRALINE ACTAVIS [Concomitant]
     Active Substance: SERTRALINE HYDROCHLORIDE
  10. PROGRAF [Concomitant]
     Active Substance: TACROLIMUS\TACROLIMUS ANHYDROUS
  11. PREDNISOLONE. [Concomitant]
     Active Substance: PREDNISOLONE
  12. AZATHIOPRINE. [Concomitant]
     Active Substance: AZATHIOPRINE
  13. FOLIC ACID. [Concomitant]
     Active Substance: FOLIC ACID
  14. TRIMETHOPRIM. [Concomitant]
     Active Substance: TRIMETHOPRIM
  15. SULFAMETHOXAZOLE (+) TRIMETHOPRIM [Suspect]
     Active Substance: SULFAMETHOXAZOLE\TRIMETHOPRIM
     Indication: PNEUMOCYSTIS JIROVECII PNEUMONIA
     Route: 042
     Dates: start: 20171115, end: 20171119
  16. CASPOFUNGIN ACETATE. [Suspect]
     Active Substance: CASPOFUNGIN ACETATE
     Dosage: 50 MG, QD
     Route: 042
     Dates: start: 20171114, end: 20171118
  17. AMIODARONE [Suspect]
     Active Substance: AMIODARONE
     Dosage: 900MG OVER 24 HOURS (AFTER INITIAL LOADING DOSE)
     Route: 042
     Dates: start: 20171118, end: 20171119

REACTIONS (2)
  - Toxic epidermal necrolysis [Recovering/Resolving]
  - Nikolsky^s sign [Unknown]

NARRATIVE: CASE EVENT DATE: 20171120
